FAERS Safety Report 4286896-5 (Version None)
Quarter: 2004Q1

REPORT INFORMATION
  Report Type: 
  Country: None (occurrence: None)
  Receive Date: 20040121
  Receipt Date: 20030829
  Transmission Date: 20041129
  Serious: Yes (Hospitalization)
  Sender: FDA-Public Use
  Company Number: A03200302002

PATIENT
  Age: 68 Year
  Sex: Female
  Weight: 67.1324 kg

DRUGS (10)
  1. PLAVIX [Suspect]
     Dosage: ORAL
     Route: 048
     Dates: start: 20011204, end: 20020825
  2. IRON [Concomitant]
  3. FUROSEMIDE [Concomitant]
  4. DOXAZOSIN MESYLATE [Concomitant]
  5. NICOTINIC ACID [Concomitant]
  6. GLYCERYL TRINITRATE [Concomitant]
  7. PANTOPRAZOLE [Concomitant]
  8. ATENOLOL [Concomitant]
  9. POTASSIUM [Concomitant]
  10. STUDY DRUG: ATORVASTATIN 80MG VERSUS PRAVASTATIN 40MG [Concomitant]

REACTIONS (2)
  - ANAEMIA [None]
  - GASTROINTESTINAL HAEMORRHAGE [None]
